FAERS Safety Report 7485191-0 (Version None)
Quarter: 2011Q2

REPORT INFORMATION
  Report Type: 
  Country: None (occurrence: None)
  Receive Date: 20110517
  Receipt Date: 20110510
  Transmission Date: 20111010
  Serious: Yes (Hospitalization)
  Sender: FDA-Public Use
  Company Number: US-ROCHE-776877

PATIENT
  Age: 64 Year
  Sex: Male
  Weight: 75.5 kg

DRUGS (15)
  1. COLACE [Concomitant]
  2. AVASTIN [Suspect]
     Route: 042
     Dates: start: 20110510
  3. TEMODAR [Suspect]
     Indication: GLIOBLASTOMA MULTIFORME
     Route: 065
     Dates: start: 20110126
  4. DIAZEPAM [Concomitant]
  5. BENZTROPINE MESYLATE [Concomitant]
  6. AVASTIN [Suspect]
     Indication: GLIOBLASTOMA MULTIFORME
     Route: 042
     Dates: start: 20110126, end: 20110209
  7. ARICEPT [Concomitant]
  8. CITALOPRAM HYDROBROMIDE [Concomitant]
  9. DEPAKOTE [Concomitant]
  10. FINASTERIDE [Concomitant]
  11. PRILOSEC [Concomitant]
  12. TERAZOSIN HCL [Concomitant]
  13. ZOCOR [Concomitant]
  14. TRAZODONE HCL [Concomitant]
  15. FLUPHENAZINE [Concomitant]

REACTIONS (3)
  - FALL [None]
  - URINARY TRACT INFECTION [None]
  - CONFUSIONAL STATE [None]
